FAERS Safety Report 14094181 (Version 1)
Quarter: 2017Q4

REPORT INFORMATION
  Report Type: Spontaneous
  Country: SE (occurrence: SE)
  Receive Date: 20171016
  Receipt Date: 20171016
  Transmission Date: 20180321
  Serious: Yes (Other)
  Sender: FDA-Public Use
  Company Number: SE-TEVA-814925ISR

PATIENT
  Sex: Female

DRUGS (1)
  1. AMLODIPINE [Suspect]
     Active Substance: AMLODIPINE BESYLATE

REACTIONS (3)
  - Arrhythmia [Not Recovered/Not Resolved]
  - Alopecia [Not Recovered/Not Resolved]
  - Epistaxis [Not Recovered/Not Resolved]
